FAERS Safety Report 5620369-X (Version None)
Quarter: 2008Q1

REPORT INFORMATION
  Report Type: 
  Country: None (occurrence: None)
  Receive Date: 20080208
  Receipt Date: 20071029
  Transmission Date: 20080703
  Serious: No
  Sender: FDA-Public Use
  Company Number: US-BAYER-US-2007-041032

PATIENT
  Age: 26 Year
  Sex: Female
  Weight: 82 kg

DRUGS (4)
  1. MIRENA [Suspect]
     Indication: VAGINAL HAEMORRHAGE
     Route: 015
     Dates: start: 20070911
  2. METOPROLOL (NOS) [Concomitant]
     Indication: HYPERTENSION
     Dates: start: 20070101
  3. EFFEXOR XR [Concomitant]
     Indication: ANXIETY
  4. SYNTHROID [Concomitant]

REACTIONS (2)
  - ABDOMINAL PAIN LOWER [None]
  - VAGINAL HAEMORRHAGE [None]
